FAERS Safety Report 18957309 (Version 1)
Quarter: 2021Q1

REPORT INFORMATION
  Report Type: Spontaneous
  Country: US (occurrence: US)
  Receive Date: 20210301
  Receipt Date: 20210301
  Transmission Date: 20210420
  Serious: Yes (Hospitalization)
  Sender: FDA-Public Use
  Company Number: None

PATIENT
  Age: 31 Year
  Sex: Female
  Weight: 78.75 kg

DRUGS (8)
  1. DICLOFENAC SOD [Concomitant]
     Active Substance: DICLOFENAC SODIUM
  2. AMLODIPINE BESYLATE. [Concomitant]
     Active Substance: AMLODIPINE BESYLATE
  3. STELARA [Suspect]
     Active Substance: USTEKINUMAB
     Indication: PSORIATIC ARTHROPATHY
     Dosage: QUANTITY:1 INJECTION(S);OTHER FREQUENCY:12WK;?
     Route: 058
     Dates: start: 20191201, end: 20200318
  4. OTEZLA [Concomitant]
     Active Substance: APREMILAST
  5. PANTOPRAZOLE SOD [Concomitant]
     Active Substance: PANTOPRAZOLE SODIUM
  6. MULTI VITAMIN [Concomitant]
     Active Substance: VITAMINS
  7. STELARA [Suspect]
     Active Substance: USTEKINUMAB
     Indication: PSORIASIS
     Dosage: QUANTITY:1 INJECTION(S);OTHER FREQUENCY:12WK;?
     Route: 058
     Dates: start: 20191201, end: 20200318
  8. BUPROPION HCL [Concomitant]
     Active Substance: BUPROPION HYDROCHLORIDE

REACTIONS (7)
  - Poisoning [None]
  - Hypoaesthesia [None]
  - Paraesthesia [None]
  - Visual impairment [None]
  - Confusional state [None]
  - Blood pressure decreased [None]
  - Hypertensive encephalopathy [None]

NARRATIVE: CASE EVENT DATE: 20200313
